FAERS Safety Report 11935431 (Version 2)
Quarter: 2016Q2

REPORT INFORMATION
  Report Type: Spontaneous
  Country: US (occurrence: US)
  Receive Date: 20160121
  Receipt Date: 20160418
  Transmission Date: 20160815
  Serious: No
  Sender: FDA-Public Use
  Company Number: US-OTSUKA-2015_017520

PATIENT
  Age: 16 Year
  Sex: Male

DRUGS (10)
  1. REXULTI [Suspect]
     Active Substance: BREXPIPRAZOLE
     Indication: MAJOR DEPRESSION
     Dosage: 0.5 MG, QD
     Route: 048
     Dates: start: 20151202
  2. GUANFACINE. [Concomitant]
     Active Substance: GUANFACINE
     Indication: ATTENTION DEFICIT/HYPERACTIVITY DISORDER
     Dosage: 2 MG, QD
     Route: 048
  3. REXULTI [Suspect]
     Active Substance: BREXPIPRAZOLE
     Indication: PANIC ATTACK
     Dosage: 5 MG, QD
     Route: 048
     Dates: start: 20151222
  4. REXULTI [Suspect]
     Active Substance: BREXPIPRAZOLE
     Indication: ADJUVANT THERAPY
     Dosage: 1 MG, UNK
     Route: 065
     Dates: start: 20151209, end: 20151215
  5. REXULTI [Suspect]
     Active Substance: BREXPIPRAZOLE
     Indication: CONFUSIONAL STATE
     Dosage: 0.5 MG, UNK
     Route: 065
  6. CONCERTA [Concomitant]
     Active Substance: METHYLPHENIDATE HYDROCHLORIDE
     Indication: ATTENTION DEFICIT/HYPERACTIVITY DISORDER
     Dosage: 72 MG, QD
     Route: 048
  7. BUPROPION XL [Concomitant]
     Active Substance: BUPROPION
     Indication: DEPRESSION
     Dosage: 300 MG, QD
     Route: 048
  8. BUPROPION XL [Concomitant]
     Active Substance: BUPROPION
     Indication: ADJUVANT THERAPY
  9. REXULTI [Suspect]
     Active Substance: BREXPIPRAZOLE
     Indication: IRRITABILITY
  10. SERTRALINE [Concomitant]
     Active Substance: SERTRALINE HYDROCHLORIDE
     Indication: DEPRESSION
     Dosage: 150 MG, QD (EVERY MORNING)
     Route: 048

REACTIONS (9)
  - Panic attack [Unknown]
  - Amnesia [Not Recovered/Not Resolved]
  - Mental disorder [Not Recovered/Not Resolved]
  - Daydreaming [Not Recovered/Not Resolved]
  - Irritability [Not Recovered/Not Resolved]
  - Confusional state [Not Recovered/Not Resolved]
  - Mood altered [Unknown]
  - Overdose [Unknown]
  - Off label use [Unknown]

NARRATIVE: CASE EVENT DATE: 201512
